FAERS Safety Report 8653613 (Version 4)
Quarter: 2012Q4

REPORT INFORMATION
  Report Type: 
  Country: US (occurrence: US)
  Receive Date: 20120620
  Receipt Date: 20120905
  Transmission Date: 20130627
  Serious: Yes (Hospitalization, Disabling, Other)
  Sender: FDA-Public Use
  Company Number: US-009507513-2012SP011823

PATIENT

DRUGS (1)
  1. NUVARING [Suspect]
     Indication: MENORRHAGIA
     Dosage: UNK
     Dates: start: 200811, end: 20090314

REACTIONS (38)
  - Myocardial infarction [Unknown]
  - Cerebral venous thrombosis [Recovering/Resolving]
  - Aneurysm [Unknown]
  - Hypercoagulation [Unknown]
  - Rheumatic disorder [Unknown]
  - Macular degeneration [Unknown]
  - Brain neoplasm [Unknown]
  - Nervousness [Unknown]
  - Ovarian cyst [Unknown]
  - Portal vein thrombosis [Unknown]
  - Transient ischaemic attack [Unknown]
  - Migraine [Unknown]
  - Off label use [Unknown]
  - Rotator cuff syndrome [Unknown]
  - Joint dislocation [Unknown]
  - Radius fracture [Unknown]
  - Fall [Unknown]
  - Osteoarthritis [Unknown]
  - Spinal column stenosis [Unknown]
  - Synovial cyst [Unknown]
  - Tendonitis [Unknown]
  - Intervertebral disc degeneration [Unknown]
  - Spinal osteoarthritis [Unknown]
  - Chronic tonsillitis [Unknown]
  - Sleep apnoea syndrome [Unknown]
  - Gastrooesophageal reflux disease [Unknown]
  - Tendon disorder [Unknown]
  - Mastoiditis [Unknown]
  - Seasonal allergy [Unknown]
  - Hyperaesthesia [Unknown]
  - Incision site haemorrhage [Recovered/Resolved]
  - Iron deficiency anaemia [Recovered/Resolved]
  - Endometriosis [Unknown]
  - Uterine leiomyoma [Unknown]
  - Hysterectomy [Unknown]
  - Salpingo-oophorectomy unilateral [Unknown]
  - Urinary tract infection [Unknown]
  - Sinusitis [Unknown]
